FAERS Safety Report 4430090-1 (Version None)
Quarter: 2004Q3

REPORT INFORMATION
  Report Type: 
  Country: None (occurrence: None)
  Receive Date: 20040817
  Receipt Date: 20040803
  Transmission Date: 20050211
  Serious: Yes (Hospitalization)
  Sender: FDA-Public Use
  Company Number: S04-USA-04868-01

PATIENT
  Age: 62 Year
  Sex: Female

DRUGS (5)
  1. LEXAPRO [Suspect]
     Indication: DEPRESSION
     Dosage: 10 MG QD PO
     Route: 048
     Dates: start: 20031101, end: 20040601
  2. LEXAPRO [Suspect]
     Indication: DEPRESSION
     Dosage: 10 MG QD PO
     Route: 048
     Dates: start: 20040701
  3. LOW DOSE HORMONE (NOS) [Concomitant]
  4. ASPIRIN [Concomitant]
  5. CLARITIN-D [Concomitant]

REACTIONS (14)
  - BLOOD GLUCOSE INCREASED [None]
  - DEPRESSED LEVEL OF CONSCIOUSNESS [None]
  - DIZZINESS [None]
  - EPISTAXIS [None]
  - HAEMATOCRIT DECREASED [None]
  - HAEMOGLOBIN DECREASED [None]
  - HAEMORRHAGE [None]
  - INJURY [None]
  - MEAN CELL HAEMOGLOBIN DECREASED [None]
  - MEAN PLATELET VOLUME DECREASED [None]
  - PLATELET COUNT INCREASED [None]
  - PLATELET DISORDER [None]
  - PLATELET FUNCTION TEST ABNORMAL [None]
  - THROMBOCYTHAEMIA [None]
